FAERS Safety Report 4604283-4 (Version None)
Quarter: 2005Q1

REPORT INFORMATION
  Report Type: 
  Country: None (occurrence: None)
  Receive Date: 20050308
  Receipt Date: 20050308
  Transmission Date: 20050727
  Serious: Yes (Hospitalization)
  Sender: FDA-Public Use
  Company Number: None

PATIENT
  Age: 79 Year
  Sex: Male
  Weight: 50.7 kg

DRUGS (1)
  1. MORPHINE SA [Suspect]
     Indication: POST HERPETIC NEURALGIA
     Dosage: 45 MG PO BID
     Route: 048
     Dates: start: 20040801, end: 20040901

REACTIONS (2)
  - NAUSEA [None]
  - VOMITING [None]
